FAERS Safety Report 17031643 (Version 1)
Quarter: 2019Q4

REPORT INFORMATION
  Report Type: Spontaneous
  Country: US (occurrence: US)
  Receive Date: 20191011
  Receipt Date: 20191011
  Transmission Date: 20200122
  Serious: No
  Sender: FDA-Public Use
  Company Number: None

PATIENT
  Age: 79 Year
  Sex: Female
  Weight: 50.8 kg

DRUGS (8)
  1. TROPICAMIDE. [Suspect]
     Active Substance: TROPICAMIDE
     Indication: PUPIL DILATION PROCEDURE
  2. ROSULVASTATIN [Concomitant]
  3. SPIRONOLACTONE. [Concomitant]
     Active Substance: SPIRONOLACTONE
  4. BIOTIN [Concomitant]
     Active Substance: BIOTIN
  5. CALCIUM W/D3 [Concomitant]
  6. MAGNESIUM [Concomitant]
     Active Substance: MAGNESIUM
  7. PROPARACAINE [Suspect]
     Active Substance: PROPARACAINE
     Indication: PUPIL DILATION PROCEDURE
  8. ASPIRIN 81MG [Concomitant]
     Active Substance: ASPIRIN

REACTIONS (10)
  - Paraesthesia oral [None]
  - Visual impairment [None]
  - Dry mouth [None]
  - Eye pain [None]
  - Glossodynia [None]
  - Halo vision [None]
  - Illusion [None]
  - Eye irritation [None]
  - Tongue discomfort [None]
  - Dysgeusia [None]

NARRATIVE: CASE EVENT DATE: 20190830
